FAERS Safety Report 21212879 (Version 1)
Quarter: 2022Q3

REPORT INFORMATION
  Report Type: Spontaneous
  Country: US (occurrence: None)
  Receive Date: 20220814
  Receipt Date: 20220814
  Transmission Date: 20221027
  Serious: No
  Sender: FDA-Public Use
  Company Number: None

PATIENT
  Age: 55 Year
  Sex: Female

DRUGS (1)
  1. TEMOZOLOMIDE [Suspect]
     Active Substance: TEMOZOLOMIDE
     Dosage: 240MG DAILY ORAL
     Route: 048
     Dates: start: 202203

REACTIONS (2)
  - Nausea [None]
  - Presyncope [None]

NARRATIVE: CASE EVENT DATE: 20220814
